FAERS Safety Report 10253925 (Version 1)
Quarter: 2014Q2

REPORT INFORMATION
  Report Type: Report from Study
  Country: JP (occurrence: JP)
  Receive Date: 20140623
  Receipt Date: 20140623
  Transmission Date: 20141212
  Serious: No
  Sender: FDA-Public Use
  Company Number: PHHY2013JP157236

PATIENT
  Age: 73 Year
  Sex: Male

DRUGS (8)
  1. TASIGNA [Suspect]
     Indication: CHRONIC MYELOID LEUKAEMIA
     Dosage: UNK UKN, UNK
     Dates: start: 201105, end: 201208
  2. ALLOPURINOL [Concomitant]
     Dosage: UNK UKN, UNK
  3. CELOOP [Concomitant]
     Dosage: UNK UKN, UNK
  4. LAC-B [Concomitant]
     Dosage: UNK UKN, UNK
  5. CINAL [Concomitant]
     Dosage: UNK UKN, UNK
  6. FERROMIA [Concomitant]
     Dosage: UNK UKN, UNK
  7. MARZULENE S [Concomitant]
     Dosage: UNK UKN, UNK
  8. OMEPRAZOLE [Concomitant]
     Dosage: UNK UKN, UNK

REACTIONS (1)
  - Diarrhoea [Unknown]
